FAERS Safety Report 8155649-X (Version None)
Quarter: 2012Q1

REPORT INFORMATION
  Report Type: 
  Country: None (occurrence: None)
  Receive Date: 20120222
  Receipt Date: 20120220
  Transmission Date: 20120608
  Serious: No
  Sender: FDA-Public Use
  Company Number: US-PFIZER INC-2012044897

PATIENT
  Sex: Female
  Weight: 71.655 kg

DRUGS (10)
  1. KLONOPIN [Suspect]
     Indication: DEPRESSION
     Dosage: 3 MG, DAILY
  2. PAXIL CR [Concomitant]
     Indication: ANXIETY
  3. GEODON [Suspect]
     Indication: BIPOLAR DISORDER
     Dosage: 20 MG, DAILY
     Dates: start: 20120202, end: 20120201
  4. IBUPROFEN [Suspect]
     Indication: FIBROMYALGIA
     Dosage: UNK
  5. ZOCOR [Concomitant]
     Indication: BLOOD CHOLESTEROL INCREASED
     Dosage: 40 MG, DAILY
  6. LEXAPRO [Concomitant]
     Indication: DEPRESSION
     Dosage: 20 MG, DAILY
  7. GEODON [Suspect]
     Dosage: 60 MG, DAILY
     Dates: start: 20120215, end: 20120218
  8. KLONOPIN [Suspect]
     Indication: ANXIETY
  9. IBUPROFEN [Suspect]
     Indication: OSTEOARTHRITIS
     Dosage: 800 MG, 3X/DAY
  10. PAXIL CR [Concomitant]
     Indication: DEPRESSION
     Dosage: 25 MG, DAILY

REACTIONS (16)
  - VISUAL ACUITY REDUCED [None]
  - NERVOUSNESS [None]
  - HIDRADENITIS [None]
  - DECREASED APPETITE [None]
  - ANXIETY [None]
  - DRUG INEFFECTIVE [None]
  - DYSPNOEA [None]
  - VOMITING [None]
  - RESTLESSNESS [None]
  - IRRITABILITY [None]
  - WEIGHT DECREASED [None]
  - GASTRIC DISORDER [None]
  - PALPITATIONS [None]
  - STRESS [None]
  - INSOMNIA [None]
  - NAUSEA [None]
